FAERS Safety Report 8746525 (Version 4)
Quarter: 2013Q1

REPORT INFORMATION
  Report Type: Spontaneous
  Country: US (occurrence: US)
  Receive Date: 20120827
  Receipt Date: 20130226
  Transmission Date: 20140127
  Serious: No
  Sender: FDA-Public Use
  Company Number: US-009507513-1207USA009228

PATIENT
  Sex: Female
  Weight: 104.31 kg

DRUGS (1)
  1. IMPLANON [Suspect]
     Indication: CONTRACEPTION
     Dosage: UNK
     Route: 059
     Dates: start: 20110204

REACTIONS (8)
  - Implant site bruising [Not Recovered/Not Resolved]
  - Implant site swelling [Not Recovered/Not Resolved]
  - Hypoaesthesia [Not Recovered/Not Resolved]
  - Implant site pain [Not Recovered/Not Resolved]
  - Implant site pain [Not Recovered/Not Resolved]
  - Device difficult to use [Unknown]
  - Device dislocation [Unknown]
  - Medical device complication [Unknown]
